FAERS Safety Report 18908467 (Version 1)
Quarter: 2021Q1

REPORT INFORMATION
  Report Type: Spontaneous
  Country: US (occurrence: US)
  Receive Date: 20210217
  Receipt Date: 20210217
  Transmission Date: 20210420
  Serious: No
  Sender: FDA-Public Use
  Company Number: None

PATIENT
  Age: 68 Year
  Sex: Male

DRUGS (7)
  1. TRAMADOL. [Concomitant]
     Active Substance: TRAMADOL
  2. PREDNISONE. [Concomitant]
     Active Substance: PREDNISONE
  3. COSENTYX [Suspect]
     Active Substance: SECUKINUMAB
     Indication: PSORIASIS
     Dosage: ?          QUANTITY:1 DF DOSAGE FORM;?
     Dates: start: 20201103, end: 20210217
  4. OMEPRAZOLE. [Concomitant]
     Active Substance: OMEPRAZOLE
  5. COSENTYX [Suspect]
     Active Substance: SECUKINUMAB
     Indication: PSORIATIC ARTHROPATHY
  6. ROSUVASTATIN. [Concomitant]
     Active Substance: ROSUVASTATIN
  7. CARVEDILOL. [Concomitant]
     Active Substance: CARVEDILOL

REACTIONS (3)
  - Urticaria [None]
  - Therapy cessation [None]
  - Skin disorder [None]

NARRATIVE: CASE EVENT DATE: 20210217
